FAERS Safety Report 8358311-3 (Version None)
Quarter: 2012Q2

REPORT INFORMATION
  Report Type: 
  Country: None (occurrence: None)
  Receive Date: 20120514
  Receipt Date: 20110414
  Transmission Date: 20120825
  Serious: No
  Sender: FDA-Public Use
  Company Number: US-ALEXION-A201100573

PATIENT
  Sex: Male

DRUGS (11)
  1. ACTONEL [Concomitant]
     Dosage: UNK
  2. SOLIRIS [Suspect]
     Indication: PAROXYSMAL NOCTURNAL HAEMOGLOBINURIA
     Route: 042
  3. IRON [Concomitant]
  4. PRILOSEC [Concomitant]
     Indication: GASTROOESOPHAGEAL REFLUX DISEASE
     Dosage: UNK
  5. RESTORIL [Concomitant]
     Dosage: UNK
  6. LASIX [Concomitant]
     Dosage: 80 MG, MON, WED, FRI
  7. PREDNISONE [Concomitant]
     Dosage: 1 DAILY
  8. FOSAMAX [Concomitant]
     Dosage: UNK
  9. FOLIC ACID [Concomitant]
  10. LANTUS [Concomitant]
     Dosage: UNK
  11. GLUCOSAMINE [Concomitant]
     Dosage: UNK

REACTIONS (7)
  - FALL [None]
  - DIARRHOEA [None]
  - GASTROOESOPHAGEAL REFLUX DISEASE [None]
  - VOMITING [None]
  - HYPOAESTHESIA [None]
  - EXCORIATION [None]
  - MUSCULAR WEAKNESS [None]
